FAERS Safety Report 4389875-2 (Version None)
Quarter: 2004Q2

REPORT INFORMATION
  Report Type: 
  Country: None (occurrence: None)
  Receive Date: 20040630
  Receipt Date: 20040615
  Transmission Date: 20050107
  Serious: Yes (Other)
  Sender: FDA-Public Use
  Company Number: US-JNJFOC-20040502198

PATIENT
  Age: 56 Year
  Sex: Male
  Weight: 77.5651 kg

DRUGS (20)
  1. REMICADE [Suspect]
     Indication: CROHN'S DISEASE
     Dosage: 400 + 500 MG, INTRAVENOUS
     Route: 042
     Dates: start: 20010420
  2. REMICADE [Suspect]
     Indication: CROHN'S DISEASE
     Dosage: 400 + 500 MG, INTRAVENOUS
     Route: 042
     Dates: start: 20020411
  3. REMICADE [Suspect]
     Indication: CROHN'S DISEASE
     Dosage: 400 + 500 MG, INTRAVENOUS
     Route: 042
     Dates: start: 20020920
  4. REMICADE [Suspect]
     Indication: CROHN'S DISEASE
     Dosage: 400 + 500 MG, INTRAVENOUS
     Route: 042
     Dates: start: 20021115
  5. REMICADE [Suspect]
     Indication: CROHN'S DISEASE
     Dosage: 400 + 500 MG, INTRAVENOUS
     Route: 042
     Dates: start: 20030110
  6. REMICADE [Suspect]
     Indication: CROHN'S DISEASE
     Dosage: 400 + 500 MG, INTRAVENOUS
     Route: 042
     Dates: start: 20030307
  7. REMICADE [Suspect]
     Indication: CROHN'S DISEASE
     Dosage: 400 + 500 MG, INTRAVENOUS
     Route: 042
     Dates: start: 20030502
  8. REMICADE [Suspect]
     Indication: CROHN'S DISEASE
     Dosage: 400 + 500 MG, INTRAVENOUS
     Route: 042
     Dates: start: 20030627
  9. REMICADE [Suspect]
     Indication: CROHN'S DISEASE
     Dosage: 400 + 500 MG, INTRAVENOUS
     Route: 042
     Dates: start: 20030822
  10. REMICADE [Suspect]
     Indication: CROHN'S DISEASE
     Dosage: 400 + 500 MG, INTRAVENOUS
     Route: 042
     Dates: start: 20031017
  11. REMICADE [Suspect]
     Indication: CROHN'S DISEASE
     Dosage: 400 + 500 MG, INTRAVENOUS
     Route: 042
     Dates: start: 20031212
  12. REMICADE [Suspect]
     Indication: CROHN'S DISEASE
     Dosage: 400 + 500 MG, INTRAVENOUS
     Route: 042
     Dates: start: 20040220
  13. REMICADE [Suspect]
     Indication: CROHN'S DISEASE
     Dosage: 400 + 500 MG, INTRAVENOUS
     Route: 042
     Dates: start: 20040430
  14. VIOXX [Concomitant]
  15. PROZAC [Concomitant]
  16. LIPITOR [Concomitant]
  17. ASACOL [Concomitant]
  18. LISINOPRIL (LIZINOPRIL) [Concomitant]
  19. ASPRIN (ACETYLSALICYLIC ACID) [Concomitant]
  20. VIAGRA [Concomitant]

REACTIONS (18)
  - ABDOMINAL PAIN [None]
  - AORTIC ATHEROSCLEROSIS [None]
  - AORTIC VALVE INCOMPETENCE [None]
  - BLOOD PRESSURE INCREASED [None]
  - BRONCHOSPASM [None]
  - CARDIAC MURMUR [None]
  - CARDIAC STRESS TEST ABNORMAL [None]
  - CHEST DISCOMFORT [None]
  - COUGH [None]
  - CRACKLES LUNG [None]
  - CROHN'S DISEASE [None]
  - DYSPNOEA EXERTIONAL [None]
  - ELECTROCARDIOGRAM T WAVE INVERSION [None]
  - ISCHAEMIA [None]
  - PAIN [None]
  - RALES [None]
  - THROAT IRRITATION [None]
  - THROAT TIGHTNESS [None]
